FAERS Safety Report 4371059-5 (Version None)
Quarter: 2004Q2

REPORT INFORMATION
  Report Type: 
  Country: None (occurrence: None)
  Receive Date: 20040604
  Receipt Date: 20040526
  Transmission Date: 20050107
  Serious: Yes (Disabling)
  Sender: FDA-Public Use
  Company Number: PHBS2004JP07024

PATIENT
  Age: 28 Year
  Sex: Male

DRUGS (1)
  1. NEORAL [Suspect]
     Indication: BONE MARROW TRANSPLANT
     Dosage: 140 MG/D
     Route: 048
     Dates: start: 20040424, end: 20040519

REACTIONS (1)
  - SINUS BRADYCARDIA [None]
